FAERS Safety Report 7441784-8 (Version None)
Quarter: 2011Q2

REPORT INFORMATION
  Report Type: 
  Country: None (occurrence: None)
  Receive Date: 20110428
  Receipt Date: 20110421
  Transmission Date: 20111010
  Serious: Yes (Death)
  Sender: FDA-Public Use
  Company Number: JP-PFIZER INC-2011024104

PATIENT
  Sex: Male
  Weight: 53 kg

DRUGS (1)
  1. CELECOX [Suspect]
     Indication: OSTEOARTHRITIS
     Dosage: 200 MG DAILY
     Route: 048
     Dates: start: 20080115

REACTIONS (1)
  - RECTAL CANCER [None]
